FAERS Safety Report 14929377 (Version 1)
Quarter: 2018Q2

REPORT INFORMATION
  Report Type: Spontaneous
  Country: US (occurrence: US)
  Receive Date: 20180523
  Receipt Date: 20180523
  Transmission Date: 20180711
  Serious: Yes (Hospitalization, Other)
  Sender: FDA-Public Use
  Company Number: US-ASTRAZENECA-2018SE44169

PATIENT
  Age: 916 Month
  Sex: Male
  Weight: 81.6 kg

DRUGS (20)
  1. LISINOPRIL. [Suspect]
     Active Substance: LISINOPRIL
     Route: 048
  2. BRILINTA [Suspect]
     Active Substance: TICAGRELOR
     Indication: ANGIOPLASTY
     Dosage: 90.0MG UNKNOWN
     Route: 048
     Dates: start: 20180131
  3. BRILINTA [Suspect]
     Active Substance: TICAGRELOR
     Indication: ANGIOPLASTY
     Dosage: 90.0MG UNKNOWN
     Route: 048
     Dates: start: 201802, end: 20180321
  4. METFORMIN [Concomitant]
     Active Substance: METFORMIN HYDROCHLORIDE
     Indication: BLOOD GLUCOSE INCREASED
  5. B12  SHOT [Concomitant]
     Dosage: MONTHLY
  6. BRILINTA [Suspect]
     Active Substance: TICAGRELOR
     Indication: PERCUTANEOUS CORONARY INTERVENTION
     Dosage: 90.0MG UNKNOWN
     Route: 048
     Dates: start: 201802, end: 20180321
  7. ASPIRIN. [Concomitant]
     Active Substance: ASPIRIN
     Indication: PROPHYLAXIS
     Dates: start: 2006
  8. BRILINTA [Suspect]
     Active Substance: TICAGRELOR
     Indication: PERCUTANEOUS CORONARY INTERVENTION
     Dosage: 90.0MG UNKNOWN
     Route: 048
     Dates: start: 20180131
  9. MORPHINE [Concomitant]
     Active Substance: MORPHINE
     Indication: PAIN
  10. BRILINTA [Suspect]
     Active Substance: TICAGRELOR
     Indication: PERCUTANEOUS CORONARY INTERVENTION
     Dosage: 90.0MG UNKNOWN
     Route: 048
     Dates: start: 20180329
  11. HYDROCORTISONE. [Concomitant]
     Active Substance: HYDROCORTISONE
  12. BRILINTA [Suspect]
     Active Substance: TICAGRELOR
     Indication: PERCUTANEOUS CORONARY INTERVENTION
     Dosage: 90.0MG UNKNOWN
     Route: 048
     Dates: start: 20180508
  13. ATORVASTATIN [Concomitant]
     Active Substance: ATORVASTATIN
  14. FENTANYL. [Concomitant]
     Active Substance: FENTANYL
     Indication: PAIN
     Dosage: 50HCG, EVERY 3RD DAY
     Route: 062
  15. METOPROLOL TARTRATE. [Suspect]
     Active Substance: METOPROLOL TARTRATE
     Route: 048
  16. BENADRYL [Concomitant]
     Active Substance: DIPHENHYDRAMINE HYDROCHLORIDE
     Indication: PRURITUS
     Dosage: 25MG, 2 TABS DAILY
  17. BRILINTA [Suspect]
     Active Substance: TICAGRELOR
     Indication: ANGIOPLASTY
     Dosage: 90.0MG UNKNOWN
     Route: 048
     Dates: start: 20180508
  18. BRILINTA [Suspect]
     Active Substance: TICAGRELOR
     Indication: ANGIOPLASTY
     Dosage: 90.0MG UNKNOWN
     Route: 048
     Dates: start: 20180329
  19. GABAPENTIN. [Concomitant]
     Active Substance: GABAPENTIN
     Indication: PAIN
     Dosage: 2 TABLETS ALSO TAKEN AT NIGHT, DAILY
  20. PANTOPRAZOLE [Concomitant]
     Active Substance: PANTOPRAZOLE

REACTIONS (9)
  - Renal cancer [Recovered/Resolved]
  - Arterial occlusive disease [Unknown]
  - Arterial stenosis [Unknown]
  - Device defective [Unknown]
  - Dyspnoea [Unknown]
  - Blood glucose increased [Unknown]
  - Therapy cessation [Recovered/Resolved]
  - Bladder cancer [Recovered/Resolved]
  - Gait disturbance [Unknown]

NARRATIVE: CASE EVENT DATE: 201802
